FAERS Safety Report 19213630 (Version 2)
Quarter: 2021Q2

REPORT INFORMATION
  Report Type: Spontaneous
  Country: JP (occurrence: JP)
  Receive Date: 20210504
  Receipt Date: 20210603
  Transmission Date: 20210717
  Serious: Yes (Hospitalization)
  Sender: FDA-Public Use
  Company Number: JP-B.I. PHARMACEUTICALS,INC./RIDGEFIELD-2021-BI-099975

PATIENT
  Age: 12 Year
  Sex: Male

DRUGS (5)
  1. MIZORIBINE [Concomitant]
     Active Substance: MIZORIBINE
     Indication: IGA NEPHROPATHY
     Route: 065
  2. HEPARIN SODIUM. [Concomitant]
     Active Substance: HEPARIN SODIUM
     Indication: PRODUCT USED FOR UNKNOWN INDICATION
     Dosage: 10 UNIT/KG/H.
     Route: 065
  3. PREDNISOLONE. [Concomitant]
     Active Substance: PREDNISOLONE
     Indication: IGA NEPHROPATHY
     Route: 048
  4. PERSANTIN [Suspect]
     Active Substance: DIPYRIDAMOLE
     Indication: IGA NEPHROPATHY
     Route: 065
  5. METHYLPREDNISOLONE. [Suspect]
     Active Substance: METHYLPREDNISOLONE
     Indication: IGA NEPHROPATHY
     Dosage: INFUSION ROUTE, ADMINISTERED 1 G OF METHYLPREDNISOLONE FOR?2 H FOR 3 CONSECUTIVE DAYS (CYCLE 1) AND
     Route: 065

REACTIONS (2)
  - Myocardial ischaemia [Recovered/Resolved]
  - Hypertension [Recovered/Resolved]
